FAERS Safety Report 9254699 (Version 2)
Quarter: 2013Q3

REPORT INFORMATION
  Report Type: Spontaneous
  Country: US (occurrence: US)
  Receive Date: 20130425
  Receipt Date: 20130930
  Transmission Date: 20140515
  Serious: No
  Sender: FDA-Public Use
  Company Number: US-MERCK-0601USA03103

PATIENT
  Age: 84 Year
  Sex: Female

DRUGS (11)
  1. FOSAMAX [Suspect]
     Indication: OSTEOPOROSIS
     Dosage: 70 MG, QW
     Route: 048
     Dates: end: 2005
  2. FOSAMAX [Suspect]
     Dosage: 70 MG, QW
     Route: 048
  3. FOSAMAX [Suspect]
     Dosage: UNK
     Route: 048
     Dates: start: 2008, end: 2012
  4. FOSAMAX [Suspect]
     Indication: OSTEOPOROSIS
     Dosage: 70 MG, QW
     Route: 048
     Dates: start: 2005, end: 2008
  5. DIOVAN [Concomitant]
  6. LIPITOR [Concomitant]
     Indication: BLOOD CHOLESTEROL INCREASED
  7. BIOTIN [Concomitant]
  8. ZOCOR [Concomitant]
     Route: 048
  9. ASPIRIN [Concomitant]
  10. LIPITOR [Concomitant]
     Indication: BLOOD CHOLESTEROL INCREASED
  11. DIOVAN [Concomitant]

REACTIONS (6)
  - Rhinorrhoea [Unknown]
  - Hypersensitivity [Unknown]
  - Nail growth abnormal [Recovered/Resolved]
  - Flatulence [Not Recovered/Not Resolved]
  - Back pain [Not Recovered/Not Resolved]
  - Constipation [Not Recovered/Not Resolved]
